FAERS Safety Report 15661918 (Version 2)
Quarter: 2018Q4

REPORT INFORMATION
  Report Type: Spontaneous
  Country: JP (occurrence: JP)
  Receive Date: 20181127
  Receipt Date: 20181203
  Transmission Date: 20190205
  Serious: Yes (Hospitalization)
  Sender: FDA-Public Use
  Company Number: JP-MYLANLABS-2018M1088221

PATIENT
  Age: 59 Year
  Sex: Male

DRUGS (3)
  1. TAKECAB [Suspect]
     Active Substance: VONOPRAZAN FUMURATE
     Indication: HELICOBACTER INFECTION
     Dosage: 20 MILLIGRAM, BID
     Route: 048
     Dates: start: 20181031, end: 20181105
  2. PASETOCIN                          /00249602/ [Suspect]
     Active Substance: AMOXICILLIN
     Indication: HELICOBACTER INFECTION
     Dosage: 750 MILLIGRAM, BID
     Route: 048
     Dates: start: 20181031, end: 20181105
  3. CLARITHROMYCIN MYLAN [Suspect]
     Active Substance: CLARITHROMYCIN
     Indication: HELICOBACTER INFECTION
     Dosage: 400 MILLIGRAM, BID
     Route: 048
     Dates: start: 20181031, end: 20181105

REACTIONS (1)
  - Drug eruption [Recovering/Resolving]

NARRATIVE: CASE EVENT DATE: 20181105
